FAERS Safety Report 24765745 (Version 1)
Quarter: 2024Q4

REPORT INFORMATION
  Report Type: Other
  Country: JP (occurrence: JP)
  Receive Date: 20241223
  Receipt Date: 20241223
  Transmission Date: 20250115
  Serious: Yes (Hospitalization, Other)
  Sender: EMD SERONO INC
  Company Number: JP-Merck Healthcare KGaA-2024058821

PATIENT
  Age: 75 Year
  Sex: Male

DRUGS (1)
  1. METGLUCO [Suspect]
     Active Substance: METFORMIN HYDROCHLORIDE
     Indication: Type 2 diabetes mellitus

REACTIONS (6)
  - Upper respiratory tract inflammation [Unknown]
  - Renal impairment [Unknown]
  - Lactic acidosis [Recovering/Resolving]
  - Hypophagia [Unknown]
  - Intentional product use issue [Unknown]
  - Contraindicated product administered [Unknown]
